FAERS Safety Report 5087807-5 (Version None)
Quarter: 2006Q3

REPORT INFORMATION
  Report Type: 
  Country: None (occurrence: None)
  Receive Date: 20060824
  Receipt Date: 20060815
  Transmission Date: 20061208
  Serious: Yes (Hospitalization, Other)
  Sender: FDA-Public Use
  Company Number: PHEH2006US10399

PATIENT
  Age: 83 Year
  Sex: Female

DRUGS (1)
  1. ZOMETA [Suspect]
     Indication: BREAST CANCER METASTATIC
     Dosage: EVERY FOUR WEEKS
     Dates: start: 20050701

REACTIONS (10)
  - BLOOD CREATININE INCREASED [None]
  - CIRCULATORY COLLAPSE [None]
  - DECREASED APPETITE [None]
  - DEHYDRATION [None]
  - DISORIENTATION [None]
  - FALL [None]
  - LETHARGY [None]
  - PHYSICAL DISABILITY [None]
  - RENAL IMPAIRMENT [None]
  - SOMNOLENCE [None]
